FAERS Safety Report 8027734-4 (Version None)
Quarter: 2012Q1

REPORT INFORMATION
  Report Type: 
  Country: None (occurrence: None)
  Receive Date: 20120106
  Receipt Date: 20111229
  Transmission Date: 20120608
  Serious: Yes (Hospitalization, Other)
  Sender: FDA-Public Use
  Company Number: US-BAYER-2011-019508

PATIENT
  Age: 46 Year
  Sex: Female

DRUGS (7)
  1. BUPROPION HYDROCHLORIDE [Concomitant]
     Indication: DEPRESSION
     Dosage: 100 MG, UNK
     Route: 048
     Dates: start: 20080605, end: 20090324
  2. YAZ [Suspect]
     Indication: PREMENSTRUAL SYNDROME
  3. YASMIN [Suspect]
     Indication: CONTRACEPTION
     Dosage: UNK
     Route: 048
     Dates: start: 20030201, end: 20030401
  4. ALPRAZOLAM [Concomitant]
     Indication: ANXIETY
     Dosage: 1 MG, PRN
     Route: 048
     Dates: start: 20090319
  5. YAZ [Suspect]
     Indication: CONTRACEPTION
     Dosage: UNK
     Route: 048
     Dates: start: 20070901, end: 20080301
  6. YASMIN [Suspect]
     Indication: PREMENSTRUAL SYNDROME
  7. MACROBID [Concomitant]
     Indication: URINARY TRACT INFECTION

REACTIONS (4)
  - PANCREATITIS [None]
  - CHOLECYSTITIS CHRONIC [None]
  - MESENTERIC VEIN THROMBOSIS [None]
  - PAIN [None]
